FAERS Safety Report 6115226-9 (Version None)
Quarter: 2009Q1

REPORT INFORMATION
  Report Type: 
  Country: None (occurrence: None)
  Receive Date: 20090313
  Receipt Date: 20090306
  Transmission Date: 20090719
  Serious: Yes (Other)
  Sender: FDA-Public Use
  Company Number: IT-MERCK-0903ITA00007

PATIENT

DRUGS (1)
  1. JANUVIA [Suspect]
     Route: 065

REACTIONS (1)
  - BREAST CANCER [None]
